FAERS Safety Report 8960551 (Version 1)
Quarter: 2012Q4

REPORT INFORMATION
  Report Type: Spontaneous
  Country: ZA (occurrence: None)
  Receive Date: 20121207
  Receipt Date: 20121207
  Transmission Date: 20130627
  Serious: No
  Sender: FDA-Public Use
  Company Number: None

PATIENT
  Age: 42 Year
  Sex: Female
  Weight: 72 kg

DRUGS (1)
  1. MIRENA [Suspect]

REACTIONS (5)
  - Weight increased [None]
  - Product formulation issue [None]
  - Feeling abnormal [None]
  - Nipple pain [None]
  - Fat tissue increased [None]
